FAERS Safety Report 23827365 (Version 1)
Quarter: 2024Q2

REPORT INFORMATION
  Report Type: Spontaneous
  Country: US (occurrence: None)
  Receive Date: 20240506
  Receipt Date: 20240506
  Transmission Date: 20240715
  Serious: Yes (Hospitalization)
  Sender: FDA-Public Use
  Company Number: None

PATIENT
  Age: 45 Year
  Sex: Female
  Weight: 80.2 kg

DRUGS (1)
  1. GADAVIST [Suspect]
     Active Substance: GADOBUTROL
     Indication: Magnetic resonance imaging
     Dosage: OTHER FREQUENCY : ONCE;?
     Route: 040
     Dates: start: 20240424, end: 20240424

REACTIONS (10)
  - Paraesthesia [None]
  - Chest discomfort [None]
  - Dyspnoea [None]
  - Wheezing [None]
  - Erythema [None]
  - Lip swelling [None]
  - Pruritus [None]
  - Pruritus [None]
  - Throat tightness [None]
  - Contrast media reaction [None]

NARRATIVE: CASE EVENT DATE: 20240424
